FAERS Safety Report 6970959-7 (Version None)
Quarter: 2010Q3

REPORT INFORMATION
  Report Type: 
  Country: None (occurrence: None)
  Receive Date: 20100908
  Receipt Date: 20100830
  Transmission Date: 20110219
  Serious: Yes (Other)
  Sender: FDA-Public Use
  Company Number: JP-SANOFI-AVENTIS-2010SA051593

PATIENT

DRUGS (2)
  1. LASIX [Suspect]
     Dosage: DOSAGE UNKNOWN
     Route: 048
  2. ALL OTHER THERAPEUTIC PRODUCTS [Concomitant]

REACTIONS (2)
  - MYOGLOBIN URINE PRESENT [None]
  - RHABDOMYOLYSIS [None]
